FAERS Safety Report 14128867 (Version 3)
Quarter: 2017Q4

REPORT INFORMATION
  Report Type: Spontaneous
  Country: JP (occurrence: JP)
  Receive Date: 20171026
  Receipt Date: 20171120
  Transmission Date: 20180321
  Serious: Yes (Other)
  Sender: FDA-Public Use
  Company Number: JP-GLAXOSMITHKLINE-JP2017JPN162193

PATIENT
  Age: 16 Year
  Sex: Male

DRUGS (4)
  1. VALPROATE SODIUM. [Concomitant]
     Active Substance: VALPROATE SODIUM
     Indication: MIGRAINE PROPHYLAXIS
     Dosage: 600 MG, 1D
  2. PENTAZOCINE [Concomitant]
     Active Substance: PENTAZOCINE
     Indication: MIGRAINE
     Dosage: UNK
  3. PROPRANOLOL HYDROCHLORIDE. [Concomitant]
     Active Substance: PROPRANOLOL HYDROCHLORIDE
     Indication: MIGRAINE PROPHYLAXIS
     Dosage: 30 MG, 1D
  4. IMIGRAN STATDOSE [Suspect]
     Active Substance: SUMATRIPTAN
     Indication: MIGRAINE
     Dosage: 3 MG, PRN

REACTIONS (2)
  - Cerebral reperfusion injury [Recovering/Resolving]
  - Migraine [Recovering/Resolving]
